FAERS Safety Report 20921657 (Version 1)
Quarter: 2022Q2

REPORT INFORMATION
  Report Type: Spontaneous
  Country: CA (occurrence: CA)
  Receive Date: 20220606
  Receipt Date: 20220606
  Transmission Date: 20220721
  Serious: Yes (Other)
  Sender: FDA-Public Use
  Company Number: CA-CELLTRION INC.-2022CA008265

PATIENT

DRUGS (4)
  1. INFLECTRA [Suspect]
     Active Substance: INFLIXIMAB-DYYB
     Indication: Crohn^s disease
     Dosage: 5 MG/KG, Q 0, 2, 6 WEEK, THEN EVERY 8 WEEKS
     Route: 042
     Dates: start: 20220408
  2. INFLECTRA [Suspect]
     Active Substance: INFLIXIMAB-DYYB
     Dosage: 5 MG/KG, Q 0, 2, 6 WEEK, THEN EVERY 8 WEEKS
     Route: 042
     Dates: start: 20220422
  3. INFLECTRA [Suspect]
     Active Substance: INFLIXIMAB-DYYB
     Dosage: 496 MG
     Route: 042
     Dates: start: 20220520
  4. PENTASA [Concomitant]
     Active Substance: MESALAMINE
     Dosage: 1 DF
     Dates: start: 202009

REACTIONS (4)
  - Uveitis [Unknown]
  - Incorrect dose administered [Unknown]
  - Arthralgia [Unknown]
  - Condition aggravated [Not Recovered/Not Resolved]

NARRATIVE: CASE EVENT DATE: 20220422
